FAERS Safety Report 13539075 (Version 2)
Quarter: 2017Q2

REPORT INFORMATION
  Report Type: Spontaneous
  Country: US (occurrence: US)
  Receive Date: 20170512
  Receipt Date: 20170602
  Transmission Date: 20170830
  Serious: No
  Sender: FDA-Public Use
  Company Number: US-ASTRAZENECA-2017SE46987

PATIENT
  Sex: Male
  Weight: 83.9 kg

DRUGS (1)
  1. BYDUREON [Suspect]
     Active Substance: EXENATIDE
     Indication: TYPE 2 DIABETES MELLITUS
     Route: 058

REACTIONS (6)
  - Product use issue [Unknown]
  - Visual impairment [Unknown]
  - Diabetes mellitus inadequate control [Unknown]
  - Intentional product misuse [Unknown]
  - Product quality issue [Unknown]
  - Underdose [Unknown]
